FAERS Safety Report 8795341 (Version 2)
Quarter: 2014Q3

REPORT INFORMATION
  Report Type: Report from Study
  Country: ES (occurrence: ES)
  Receive Date: 20120918
  Receipt Date: 20140718
  Transmission Date: 20150326
  Serious: Yes (Other)
  Sender: FDA-Public Use
  Company Number: ES-ROCHE-1120627

PATIENT

DRUGS (4)
  1. RIBAVIRIN. [Suspect]
     Active Substance: RIBAVIRIN
     Indication: CHRONIC HEPATITIS C
     Dosage: WEIGHT-BASED (1000 MG/DAY IF LESS THAN 75 KG AND 1200 MG/DAY IF MORE THAN OR EQUAL TO 75 KG).
     Route: 048
  2. DACLATASVIR [Suspect]
     Active Substance: DACLATASVIR
     Indication: CHRONIC HEPATITIS C
     Route: 048
  3. PEGINTERFERON ALFA-2A [Suspect]
     Active Substance: PEGINTERFERON ALFA-2A
     Indication: CHRONIC HEPATITIS C
     Route: 058
  4. ASUNAPREVIR [Suspect]
     Active Substance: ASUNAPREVIR
     Indication: CHRONIC HEPATITIS C
     Dosage: ONE GROUP:200 MG TWICE A DAY AND OTHER GROUP: 200 MG ONCE A DAY
     Route: 048

REACTIONS (1)
  - Squamous cell carcinoma [Unknown]
